FAERS Safety Report 22101926 (Version 4)
Quarter: 2024Q3

REPORT INFORMATION
  Report Type: Report from Study
  Country: GB (occurrence: GB)
  Receive Date: 20230316
  Receipt Date: 20240731
  Transmission Date: 20241016
  Serious: No
  Sender: ROCHE
  Company Number: GB-ROCHE-3310164

PATIENT
  Age: 42 Year
  Sex: Female

DRUGS (26)
  1. OCRELIZUMAB [Suspect]
     Active Substance: OCRELIZUMAB
     Indication: Relapsing-remitting multiple sclerosis
     Route: 042
     Dates: start: 20190611, end: 20190611
  2. OCRELIZUMAB [Suspect]
     Active Substance: OCRELIZUMAB
     Route: 042
     Dates: start: 20190625, end: 20190625
  3. OCRELIZUMAB [Suspect]
     Active Substance: OCRELIZUMAB
     Route: 042
     Dates: start: 20191212, end: 20191212
  4. OCRELIZUMAB [Suspect]
     Active Substance: OCRELIZUMAB
     Route: 042
     Dates: start: 20200611, end: 20200611
  5. OCRELIZUMAB [Suspect]
     Active Substance: OCRELIZUMAB
     Route: 042
     Dates: start: 20201207, end: 20201207
  6. OCRELIZUMAB [Suspect]
     Active Substance: OCRELIZUMAB
     Route: 042
     Dates: start: 20210607, end: 20210607
  7. OCRELIZUMAB [Suspect]
     Active Substance: OCRELIZUMAB
     Route: 042
     Dates: start: 20211206, end: 20211206
  8. OCRELIZUMAB [Suspect]
     Active Substance: OCRELIZUMAB
     Route: 042
     Dates: start: 20220606, end: 20220606
  9. OCRELIZUMAB [Suspect]
     Active Substance: OCRELIZUMAB
     Route: 042
     Dates: start: 20221206, end: 20221206
  10. OCRELIZUMAB [Suspect]
     Active Substance: OCRELIZUMAB
     Route: 042
     Dates: start: 20230606, end: 20230606
  11. CLEMASTINE [Concomitant]
     Active Substance: CLEMASTINE
     Indication: Seasonal allergy
     Route: 048
  12. POLYETHYLENE GLYCOL 3350\POTASSIUM CHLORIDE\SODIUM BICARBONATE\SODIUM [Concomitant]
     Active Substance: POLYETHYLENE GLYCOL 3350\POTASSIUM CHLORIDE\SODIUM BICARBONATE\SODIUM CHLORIDE
     Indication: Constipation
     Dosage: 1 OTHER?OTHER
     Route: 048
     Dates: end: 202302
  13. MAGNESIUM [Concomitant]
     Active Substance: MAGNESIUM
     Route: 048
  14. OMEGA 3 [Concomitant]
     Active Substance: CAPSAICIN
     Dosage: 1 CAPSULE
     Route: 048
  15. FLAXSEED [Concomitant]
     Active Substance: FLAX SEED
     Dosage: 1 CAPSULE
     Route: 048
     Dates: end: 202309
  16. FOLIC ACID [Concomitant]
     Active Substance: FOLIC ACID
     Dosage: 1 TABLET
     Route: 048
  17. IRON [Concomitant]
     Active Substance: IRON
     Dosage: 1 TABLET
     Route: 048
     Dates: end: 20230523
  18. ALBUTEROL [Concomitant]
     Active Substance: ALBUTEROL
     Dosage: 1 PUFF
     Route: 055
     Dates: start: 20190625
  19. VENTOLIN [Concomitant]
     Active Substance: ALBUTEROL SULFATE
     Dosage: 1 PUFF?OTHER
     Route: 055
     Dates: start: 20190625
  20. CETIRIZINE [Concomitant]
     Active Substance: CETIRIZINE HYDROCHLORIDE
     Dosage: OTHER
     Route: 048
     Dates: start: 20120713
  21. GABAPENTIN [Concomitant]
     Active Substance: GABAPENTIN
     Route: 048
     Dates: start: 2016
  22. CHOLECALCIFEROL [Concomitant]
     Active Substance: CHOLECALCIFEROL
     Dosage: 4000 U
     Route: 048
     Dates: start: 201905
  23. CITALOPRAM [Concomitant]
     Active Substance: CITALOPRAM\CITALOPRAM HYDROBROMIDE
     Route: 048
     Dates: start: 20200201
  24. IBUPROFEN [Concomitant]
     Active Substance: IBUPROFEN
     Route: 048
     Dates: start: 20200921
  25. OMEPRAZOLE [Concomitant]
     Active Substance: OMEPRAZOLE
     Route: 048
     Dates: start: 20200921
  26. CHLORPHENIRAMINE MALEATE [Concomitant]
     Active Substance: CHLORPHENIRAMINE MALEATE
     Route: 048
     Dates: start: 20211129

REACTIONS (1)
  - COVID-19 [Recovered/Resolved]

NARRATIVE: CASE EVENT DATE: 20220201
